FAERS Safety Report 7004820-9 (Version None)
Quarter: 2010Q3

REPORT INFORMATION
  Report Type: 
  Country: None (occurrence: None)
  Receive Date: 20100917
  Receipt Date: 20100831
  Transmission Date: 20110219
  Serious: Yes (Death, Hospitalization)
  Sender: FDA-Public Use
  Company Number: FKO201000367

PATIENT
  Age: 75 Year
  Sex: Male

DRUGS (3)
  1. FLUOROURACIL [Suspect]
     Indication: ADENOCARCINOMA
     Dosage: (400 MG/M2, AS A 15 MINUTE INFUSION) ; (2400 MGM2, AS A 48 HOURS INFUSION)
  2. OXALIPLATIN [Suspect]
     Indication: ADENOCARCINOMA
  3. LEUCOVORIN CALCIUM [Suspect]
     Indication: ADENOCARCINOMA

REACTIONS (9)
  - DEHYDRATION [None]
  - DIARRHOEA [None]
  - LEUKOPENIA [None]
  - MULTI-ORGAN FAILURE [None]
  - ODYNOPHAGIA [None]
  - RENAL FAILURE [None]
  - SEPTIC SHOCK [None]
  - STOMATITIS [None]
  - THROMBOCYTOPENIA [None]
